FAERS Safety Report 10290519 (Version 1)
Quarter: 2014Q3

REPORT INFORMATION
  Report Type: Spontaneous
  Country: BR (occurrence: BR)
  Receive Date: 20140710
  Receipt Date: 20140710
  Transmission Date: 20150326
  Serious: Yes (Other)
  Sender: FDA-Public Use
  Company Number: BR-PFIZER INC-2014187033

PATIENT
  Age: 57 Year
  Sex: Male
  Weight: 108 kg

DRUGS (5)
  1. LYRICA [Suspect]
     Active Substance: PREGABALIN
     Indication: SPINAL DISORDER
  2. METFORMIN [Concomitant]
     Active Substance: METFORMIN HYDROCHLORIDE
     Dosage: STRENGHT 800
     Dates: start: 1984
  3. LYRICA [Suspect]
     Active Substance: PREGABALIN
     Indication: OSTEOARTHRITIS
     Dosage: 1 CAPSULE OF 75 MG, 2X/DAY (MORNING AND AT NIGHT)
     Route: 048
     Dates: start: 2009, end: 2010
  4. ARADOIS [Concomitant]
     Active Substance: LOSARTAN POTASSIUM
     Dosage: STRENGHT 150MG
     Dates: start: 2008
  5. GLIMEPIRIDE. [Concomitant]
     Active Substance: GLIMEPIRIDE
     Dosage: UNK
     Dates: start: 1984

REACTIONS (1)
  - Spinal disorder [Unknown]

NARRATIVE: CASE EVENT DATE: 2010
